FAERS Safety Report 9201575 (Version 1)
Quarter: 2013Q2

REPORT INFORMATION
  Report Type: Spontaneous
  Country: US (occurrence: None)
  Receive Date: 20130401
  Receipt Date: 20130401
  Transmission Date: 20140414
  Serious: Yes (Death)
  Sender: FDA-Public Use
  Company Number: None

PATIENT
  Age: 72 Year
  Sex: Male
  Weight: 72.5 kg

DRUGS (1)
  1. WARFARIN [Suspect]
     Dosage: 5 MG EVERY DAY PO
     Route: 048
     Dates: start: 20121217, end: 20130118

REACTIONS (2)
  - Fall [None]
  - Haemorrhage intracranial [None]
